FAERS Safety Report 9019572 (Version 1)
Quarter: 2013Q1

REPORT INFORMATION
  Report Type: Report from Study
  Country: GB (occurrence: GB)
  Receive Date: 20130118
  Receipt Date: 20130118
  Transmission Date: 20140127
  Serious: Yes (Hospitalization)
  Sender: FDA-Public Use
  Company Number: GB-PFIZER INC-2013012614

PATIENT
  Age: 40 Year
  Sex: Female
  Weight: 69.8 kg

DRUGS (3)
  1. EPIRUBICIN HCL [Suspect]
     Indication: HER-2 POSITIVE BREAST CANCER
     Dosage: 170 MG, CYCLIC
     Route: 042
     Dates: start: 20121214, end: 20130102
  2. CYCLOPHOSPHAMIDE [Suspect]
     Indication: HER-2 POSITIVE BREAST CANCER
     Dosage: 850 MG, CYCLIC
     Route: 042
     Dates: start: 20121214, end: 20130102
  3. FLUOROURACIL [Suspect]
     Indication: HER-2 POSITIVE BREAST CANCER
     Dosage: 850 MG, CYCLIC
     Route: 042
     Dates: start: 20121214, end: 20130102

REACTIONS (2)
  - Lower respiratory tract infection [Recovered/Resolved with Sequelae]
  - Bronchitis [Recovered/Resolved with Sequelae]
